FAERS Safety Report 7352780-3 (Version None)
Quarter: 2011Q1

REPORT INFORMATION
  Report Type: 
  Country: None (occurrence: None)
  Receive Date: 20110315
  Receipt Date: 20110304
  Transmission Date: 20110831
  Serious: Yes (Other)
  Sender: FDA-Public Use
  Company Number: US-ROCHE-541985

PATIENT
  Sex: Female

DRUGS (6)
  1. FOLIC ACID [Suspect]
     Indication: RHEUMATOID ARTHRITIS
     Route: 048
     Dates: start: 20050609
  2. LEUCOVORIN CALCIUM [Suspect]
     Indication: RHEUMATOID ARTHRITIS
     Route: 048
     Dates: start: 20040819
  3. TOCILIZUMAB [Suspect]
     Indication: RHEUMATOID ARTHRITIS
     Dosage: DOSE REPORTED: 8 MG/KG AS PER PROTOCOL
     Route: 042
     Dates: start: 20061024, end: 20071218
  4. METHOTREXATE [Suspect]
     Indication: RHEUMATOID ARTHRITIS
     Dosage: DOSE REPORTED: 20.
     Route: 048
     Dates: start: 20050609
  5. TOCILIZUMAB [Suspect]
     Dosage: RECEIVED TOCILIZUMAB UNDER WA18062, WA18063 OR WA17824.
     Route: 042
  6. VOLTAREN [Suspect]
     Indication: RHEUMATOID ARTHRITIS
     Route: 048
     Dates: start: 20050909

REACTIONS (4)
  - DRUG EXPOSURE DURING PREGNANCY [None]
  - PREGNANCY [None]
  - INTRA-UTERINE DEATH [None]
  - ABORTION SPONTANEOUS [None]
